FAERS Safety Report 14567386 (Version 2)
Quarter: 2018Q1

REPORT INFORMATION
  Report Type: Spontaneous
  Country: US (occurrence: US)
  Receive Date: 20180223
  Receipt Date: 20180306
  Transmission Date: 20180509
  Serious: Yes (Other)
  Sender: FDA-Public Use
  Company Number: US-AKORN PHARMACEUTICALS-2018AKN00185

PATIENT
  Age: 28 Year
  Sex: Female
  Weight: 89.8 kg

DRUGS (4)
  1. MYORISAN [Suspect]
     Active Substance: ISOTRETINOIN
     Dosage: UNK
     Dates: start: 20171107, end: 20180208
  2. METROCREAM 0.75% [Concomitant]
     Dosage: UNK
  3. MYORISAN [Suspect]
     Active Substance: ISOTRETINOIN
     Indication: ROSACEA
     Dosage: 30 MG, 2X/DAY
     Route: 048
     Dates: start: 20171211, end: 20180208
  4. CICLOPIROX 0.77% [Concomitant]
     Dosage: UNK

REACTIONS (2)
  - Depressed mood [Recovered/Resolved]
  - Off label use [Recovered/Resolved]

NARRATIVE: CASE EVENT DATE: 20171211
